FAERS Safety Report 10923424 (Version 4)
Quarter: 2017Q4

REPORT INFORMATION
  Report Type: Report from Study
  Country: CA (occurrence: CA)
  Receive Date: 20150318
  Receipt Date: 20171117
  Transmission Date: 20180320
  Serious: Yes (Death, Life-Threatening, Hospitalization, Other)
  Sender: FDA-Public Use
  Company Number: CA-ROCHE-1549757

PATIENT
  Age: 77 Year
  Sex: Male

DRUGS (15)
  1. ACTEMRA [Suspect]
     Active Substance: TOCILIZUMAB
     Indication: RHEUMATOID ARTHRITIS
     Route: 058
     Dates: start: 20141120
  2. OLMESARTAN [Concomitant]
     Active Substance: OLMESARTAN
  3. SPIRONOLACTONE. [Concomitant]
     Active Substance: SPIRONOLACTONE
  4. PREGABALIN. [Concomitant]
     Active Substance: PREGABALIN
  5. LASIX [Concomitant]
     Active Substance: FUROSEMIDE
  6. EZETIMIBE. [Concomitant]
     Active Substance: EZETIMIBE
  7. NTG PATCH [Concomitant]
  8. WARFARIN [Concomitant]
     Active Substance: WARFARIN
  9. TRAMADOL. [Concomitant]
     Active Substance: TRAMADOL
  10. NORVASC [Concomitant]
     Active Substance: AMLODIPINE BESYLATE
  11. PANTOLOC [Concomitant]
     Active Substance: PANTOPRAZOLE SODIUM
  12. ULORIC [Concomitant]
     Active Substance: FEBUXOSTAT
  13. BISOPROLOL [Concomitant]
     Active Substance: BISOPROLOL
  14. FEBUXOSTAT. [Concomitant]
     Active Substance: FEBUXOSTAT
  15. PREDNISONE. [Concomitant]
     Active Substance: PREDNISONE

REACTIONS (5)
  - Cardiac failure [Recovering/Resolving]
  - Cerebrovascular accident [Unknown]
  - Death [Fatal]
  - Respiratory arrest [Recovering/Resolving]
  - Blindness [Unknown]

NARRATIVE: CASE EVENT DATE: 20150228
